FAERS Safety Report 10651318 (Version 1)
Quarter: 2014Q4

REPORT INFORMATION
  Report Type: Spontaneous
  Country: FR (occurrence: FR)
  Receive Date: 20141215
  Receipt Date: 20141215
  Transmission Date: 20150529
  Serious: Yes (Hospitalization)
  Sender: FDA-Public Use
  Company Number: FR-JNJFOC-20141204430

PATIENT
  Age: 72 Year
  Sex: Female

DRUGS (9)
  1. XARELTO [Suspect]
     Active Substance: RIVAROXABAN
     Indication: PRODUCT USED FOR UNKNOWN INDICATION
     Route: 048
     Dates: start: 20130816, end: 20131201
  2. XARELTO [Suspect]
     Active Substance: RIVAROXABAN
     Indication: PRODUCT USED FOR UNKNOWN INDICATION
     Route: 048
     Dates: start: 20130727, end: 20130815
  3. SERESTA [Concomitant]
     Active Substance: OXAZEPAM
     Route: 065
  4. XARELTO [Suspect]
     Active Substance: RIVAROXABAN
     Indication: PRODUCT USED FOR UNKNOWN INDICATION
     Route: 048
  5. REMINYL [Concomitant]
     Active Substance: GALANTAMINE
     Route: 065
  6. CALTRATE [Concomitant]
     Active Substance: CALCIUM CARBONATE
     Route: 065
  7. ATIVAN [Concomitant]
     Active Substance: LORAZEPAM
     Route: 065
  8. HALDOL [Concomitant]
     Active Substance: HALOPERIDOL
     Route: 065
  9. APROVEL [Concomitant]
     Active Substance: IRBESARTAN
     Route: 065

REACTIONS (2)
  - Drug ineffective [Unknown]
  - Mesenteric artery thrombosis [Unknown]

NARRATIVE: CASE EVENT DATE: 20130807
